FAERS Safety Report 9108996 (Version 1)
Quarter: 2013Q1

REPORT INFORMATION
  Report Type: Spontaneous
  Country: US (occurrence: US)
  Receive Date: 20130222
  Receipt Date: 20130222
  Transmission Date: 20140127
  Serious: Yes (Other)
  Sender: FDA-Public Use
  Company Number: US-JNJFOC-20130209844

PATIENT
  Age: 42 Year
  Sex: Female
  Weight: 117.94 kg

DRUGS (3)
  1. LISTERINE TOTAL CARE PLUS WHITENING [Suspect]
     Indication: PRODUCT USED FOR UNKNOWN INDICATION
     Dosage: CAPFUL
     Route: 048
     Dates: start: 20130129, end: 20130211
  2. UNKNOWN MEDICATION [Concomitant]
     Indication: HYPERTENSION
     Route: 065
  3. CHOLESTEROL MEDICATION NOS [Concomitant]
     Route: 065

REACTIONS (6)
  - Viral infection [Recovered/Resolved]
  - Vomiting [Recovered/Resolved]
  - Diarrhoea [Recovered/Resolved]
  - Malaise [Recovered/Resolved]
  - Product taste abnormal [Unknown]
  - Product outer packaging issue [Unknown]
